FAERS Safety Report 17280216 (Version 1)
Quarter: 2020Q1

REPORT INFORMATION
  Report Type: Spontaneous
  Country: ES (occurrence: ES)
  Receive Date: 20200117
  Receipt Date: 20200117
  Transmission Date: 20200409
  Serious: Yes (Hospitalization)
  Sender: FDA-Public Use
  Company Number: ES-ROCHE-2514189

PATIENT
  Sex: Female
  Weight: 2.4 kg

DRUGS (3)
  1. TAMIFLU [Suspect]
     Active Substance: OSELTAMIVIR PHOSPHATE
     Indication: PRODUCT USED FOR UNKNOWN INDICATION
     Route: 064
     Dates: start: 20190214, end: 20190218
  2. PARACETAMOL [Concomitant]
     Active Substance: ACETAMINOPHEN
     Indication: PRODUCT USED FOR UNKNOWN INDICATION
     Route: 064
     Dates: start: 20190214
  3. ROMILAR [DEXTROMETHORPHAN HYDROBROMIDE] [Concomitant]
     Indication: PRODUCT USED FOR UNKNOWN INDICATION
     Dosage: 15 MG / 5 ML ?1 BOTTLE OF 200 ML
     Route: 064
     Dates: start: 20190214

REACTIONS (5)
  - Ascites [Recovered/Resolved]
  - Intestinal perforation [Recovered/Resolved]
  - Intestinal malrotation [Recovered/Resolved]
  - Foetal exposure during pregnancy [Unknown]
  - Meconium peritonitis [Recovered/Resolved]

NARRATIVE: CASE EVENT DATE: 20190214
